FAERS Safety Report 8205246-2 (Version None)
Quarter: 2012Q1

REPORT INFORMATION
  Report Type: 
  Country: None (occurrence: None)
  Receive Date: 20120313
  Receipt Date: 20110622
  Transmission Date: 20120608
  Serious: No
  Sender: FDA-Public Use
  Company Number: US-MYLANLABS-2011S1013181

PATIENT
  Age: 62 Year
  Sex: Female

DRUGS (4)
  1. METOPROLOL SUCCINATE [Concomitant]
     Indication: BLOOD PRESSURE
  2. LEVOTHYROXINE SODIUM [Concomitant]
  3. BENAZEPRIL HYDROCHLORIDE [Suspect]
     Indication: HYPERTENSION
     Dates: start: 20110622
  4. AMLODIPINE [Concomitant]
     Indication: BLOOD PRESSURE

REACTIONS (3)
  - CHEST DISCOMFORT [None]
  - DYSGEUSIA [None]
  - REACTION TO DRUG EXCIPIENTS [None]
